FAERS Safety Report 11656330 (Version 1)
Quarter: 2015Q4

REPORT INFORMATION
  Report Type: Spontaneous
  Country: FR (occurrence: FR)
  Receive Date: 20151023
  Receipt Date: 20151023
  Transmission Date: 20160304
  Serious: Yes (Death)
  Sender: FDA-Public Use
  Company Number: FR-FERRINGPH-2015FE01610

PATIENT

DRUGS (3)
  1. SYNTOCINON [Concomitant]
     Active Substance: OXYTOCIN
     Indication: LABOUR INDUCTION
     Dosage: 15 ML, EVERY HOUR
     Route: 064
     Dates: start: 20141226, end: 20141227
  2. PROPESS [Suspect]
     Active Substance: DINOPROSTONE
     Indication: LABOUR INDUCTION
     Dosage: 10 MG, ONCE/SINGLE
     Route: 064
     Dates: start: 20141226, end: 20141226
  3. SYNTOCINON [Concomitant]
     Active Substance: OXYTOCIN
     Dosage: 90 ML, EVERY HOUR
     Route: 064
     Dates: start: 20141226, end: 20141227

REACTIONS (5)
  - Maternal drugs affecting foetus [None]
  - Brain stem syndrome [None]
  - Apgar score low [None]
  - Caesarean section [None]
  - Foetal distress syndrome [Fatal]

NARRATIVE: CASE EVENT DATE: 20150127
